FAERS Safety Report 8006578-3 (Version None)
Quarter: 2011Q4

REPORT INFORMATION
  Report Type: 
  Country: None (occurrence: None)
  Receive Date: 20111227
  Receipt Date: 20111214
  Transmission Date: 20120403
  Serious: No
  Sender: FDA-Public Use
  Company Number: IT-ELI_LILLY_AND_COMPANY-IT201112005120

PATIENT
  Age: 65 Year
  Sex: Male

DRUGS (3)
  1. CYMBALTA [Suspect]
     Indication: DEPRESSION
     Dosage: 60 MG, UNK
     Dates: start: 20110601, end: 20111101
  2. ANTICHOLINERGICS [Concomitant]
  3. ASPIRIN [Concomitant]

REACTIONS (2)
  - TRANSAMINASES INCREASED [None]
  - LIVER DISORDER [None]
